FAERS Safety Report 11458850 (Version 1)
Quarter: 2015Q3

REPORT INFORMATION
  Report Type: Spontaneous
  Country: US (occurrence: None)
  Receive Date: 20150903
  Receipt Date: 20150903
  Transmission Date: 20151125
  Serious: Yes (Hospitalization)
  Sender: FDA-Public Use
  Company Number: None

PATIENT
  Age: 45 Year
  Sex: Female
  Weight: 81.65 kg

DRUGS (18)
  1. ZOLOFT [Concomitant]
     Active Substance: SERTRALINE HYDROCHLORIDE
  2. CEFTRIAXONE. [Concomitant]
     Active Substance: CEFTRIAXONE
  3. RIBAVIRIN 400MG [Suspect]
     Active Substance: RIBAVIRIN
     Route: 048
  4. TRAZODONE [Concomitant]
     Active Substance: TRAZODONE HYDROCHLORIDE
  5. HARVONI [Suspect]
     Active Substance: LEDIPASVIR\SOFOSBUVIR
     Indication: HEPATITIS C
     Dosage: 90/400MG
     Route: 048
     Dates: start: 20150504, end: 20150729
  6. KLOR-CON [Concomitant]
     Active Substance: POTASSIUM CHLORIDE
  7. LACTULOSE. [Concomitant]
     Active Substance: LACTULOSE
  8. HYDROXYZINE HCL [Concomitant]
     Active Substance: HYDROXYZINE HYDROCHLORIDE
  9. MAG-OX [Concomitant]
     Active Substance: MAGNESIUM OXIDE
  10. NADOLOL. [Concomitant]
     Active Substance: NADOLOL
  11. CIPROFLOXACIN. [Concomitant]
     Active Substance: CIPROFLOXACIN
  12. DILAUDID [Concomitant]
     Active Substance: HYDROMORPHONE HYDROCHLORIDE
  13. XIFAXAN [Concomitant]
     Active Substance: RIFAXIMIN
  14. BUMETANIDE. [Concomitant]
     Active Substance: BUMETANIDE
  15. SPIRONOLACTONE. [Concomitant]
     Active Substance: SPIRONOLACTONE
  16. PROMETHAZINE [Concomitant]
     Active Substance: PROMETHAZINE\PROMETHAZINE HYDROCHLORIDE
  17. TRAMADOL. [Concomitant]
     Active Substance: TRAMADOL
  18. PROMACTA [Concomitant]
     Active Substance: ELTROMBOPAG OLAMINE

REACTIONS (9)
  - Hepatic encephalopathy [None]
  - Subdural haematoma [None]
  - Urinary tract infection [None]
  - Fall [None]
  - Loss of consciousness [None]
  - Thrombocytopenia [None]
  - Head injury [None]
  - Rib fracture [None]
  - Asthenia [None]

NARRATIVE: CASE EVENT DATE: 20150723
